FAERS Safety Report 9476665 (Version 2)
Quarter: 2013Q3

REPORT INFORMATION
  Report Type: Spontaneous
  Country: US (occurrence: US)
  Receive Date: 20130826
  Receipt Date: 20130826
  Transmission Date: 20140515
  Serious: No
  Sender: FDA-Public Use
  Company Number: US-BRISTOL-MYERS SQUIBB COMPANY-18867549

PATIENT
  Age: 53 Year
  Sex: Female
  Weight: 63.49 kg

DRUGS (2)
  1. KENALOG INJ [Suspect]
     Indication: HYPERTROPHIC SCAR
     Dosage: UPPER LID-0.3CC/6 MG?CHEEK-0.4CC/8MG
     Route: 058
     Dates: start: 20130208
  2. ARMOUR THYROID [Concomitant]

REACTIONS (1)
  - Injection site atrophy [Unknown]
